FAERS Safety Report 8529573-4 (Version None)
Quarter: 2012Q3

REPORT INFORMATION
  Report Type: 
  Country: None (occurrence: None)
  Receive Date: 20120723
  Receipt Date: 20120710
  Transmission Date: 20120928
  Serious: Yes (Other)
  Sender: FDA-Public Use
  Company Number: JP-VERTEX PHARMACEUTICALS INC.-AE-2012-010264

PATIENT
  Age: 59 Year
  Sex: Male

DRUGS (4)
  1. REBETOL [Concomitant]
     Route: 048
  2. ARB [Concomitant]
  3. PEG-INTRON [Concomitant]
     Route: 058
  4. TELAVIC (TELAPREVIR) [Suspect]
     Route: 048

REACTIONS (1)
  - SYNCOPE [None]
